FAERS Safety Report 16849486 (Version 2)
Quarter: 2019Q4

REPORT INFORMATION
  Report Type: Spontaneous
  Country: DE (occurrence: DE)
  Receive Date: 20190925
  Receipt Date: 20191102
  Transmission Date: 20200122
  Serious: Yes (Other)
  Sender: FDA-Public Use
  Company Number: DE-AXELLIA-002709

PATIENT
  Age: 71 Year
  Sex: Male

DRUGS (16)
  1. VANCOMYCIN [Suspect]
     Active Substance: VANCOMYCIN
     Indication: ULCERATIVE KERATITIS
     Dosage: UNK
     Route: 050
  2. TIMOLOL. [Suspect]
     Active Substance: TIMOLOL
     Indication: STAPHYLOCOCCAL INFECTION
  3. GRAMICIDIN/NEOMYCIN/POLYMIXIN B [Suspect]
     Active Substance: GRAMICIDIN\NEOMYCIN\POLYMYXIN B SULFATE
     Indication: ENDOPHTHALMITIS
  4. MINOCYCLINE [Suspect]
     Active Substance: MINOCYCLINE HYDROCHLORIDE
     Indication: ENDOPHTHALMITIS
     Dosage: UNK
     Route: 048
  5. GRAMICIDIN/NEOMYCIN/POLYMYXIN B [Suspect]
     Active Substance: GRAMICIDIN\NEOMYCIN\POLYMYXIN B SULFATE
     Indication: STAPHYLOCOCCAL INFECTION
     Dosage: UNK
     Route: 061
  6. CEFTAZIDIME/CEFTAZIDIME PENTAHYDRATE [Suspect]
     Active Substance: CEFTAZIDIME
     Indication: ULCERATIVE KERATITIS
     Dosage: UNK
     Route: 050
  7. MINOCYCLINE [Suspect]
     Active Substance: MINOCYCLINE HYDROCHLORIDE
     Indication: STAPHYLOCOCCAL INFECTION
     Route: 048
  8. LEVOFLOXACIN. [Suspect]
     Active Substance: LEVOFLOXACIN
     Indication: ULCERATIVE KERATITIS
     Route: 050
  9. MINOCYCLINE [Suspect]
     Active Substance: MINOCYCLINE HYDROCHLORIDE
     Indication: ULCERATIVE KERATITIS
     Route: 048
  10. DEXAMETHASONE. [Suspect]
     Active Substance: DEXAMETHASONE
     Indication: ULCERATIVE KERATITIS
     Dosage: UNK
     Route: 061
  11. LEVOFLOXACIN. [Suspect]
     Active Substance: LEVOFLOXACIN
     Indication: STAPHYLOCOCCAL INFECTION
     Dosage: UNK
     Route: 061
  12. MOXIFLOXACIN. [Suspect]
     Active Substance: MOXIFLOXACIN
     Indication: ENDOPHTHALMITIS
  13. TIMOLOL. [Suspect]
     Active Substance: TIMOLOL
     Indication: ENDOPHTHALMITIS
     Dosage: UNK
     Route: 061
  14. CYCLOPENTOLATE. [Suspect]
     Active Substance: CYCLOPENTOLATE
     Indication: STAPHYLOCOCCAL INFECTION
     Dosage: UNK
     Route: 061
  15. MOXIFLOXACIN/MOXIFLOXACIN HYDROCHLORIDE [Suspect]
     Active Substance: MOXIFLOXACIN
     Indication: STAPHYLOCOCCAL INFECTION
     Dosage: UNK
     Route: 048
  16. DEXAMETHASONE. [Suspect]
     Active Substance: DEXAMETHASONE
     Indication: STAPHYLOCOCCAL INFECTION
     Route: 050

REACTIONS (1)
  - Drug ineffective [Unknown]
